FAERS Safety Report 9517651 (Version 2)
Quarter: 2014Q2

REPORT INFORMATION
  Report Type: Spontaneous
  Country: US (occurrence: US)
  Receive Date: 20130912
  Receipt Date: 20140602
  Transmission Date: 20141212
  Serious: Yes (Hospitalization, Other)
  Sender: FDA-Public Use
  Company Number: US-BIOGENIDEC-2013BI085110

PATIENT
  Sex: Female

DRUGS (3)
  1. AVONEX [Suspect]
     Indication: MULTIPLE SCLEROSIS
     Route: 030
     Dates: start: 20060311, end: 20070328
  2. AVONEX [Suspect]
     Indication: MULTIPLE SCLEROSIS
     Route: 030
  3. AVONEX [Suspect]
     Indication: MULTIPLE SCLEROSIS
     Route: 030
     Dates: start: 20140523

REACTIONS (21)
  - Cholecystitis acute [Recovered/Resolved]
  - Gallbladder perforation [Unknown]
  - Peritonitis [Recovered/Resolved]
  - Rubber sensitivity [Recovered/Resolved]
  - Renal cancer [Recovered/Resolved]
  - Renal failure acute [Unknown]
  - Coma [Unknown]
  - Toxicity to various agents [Not Recovered/Not Resolved]
  - Fear of injection [Recovered/Resolved]
  - Enteritis infectious [Unknown]
  - Potentiating drug interaction [Unknown]
  - Overdose [Unknown]
  - Extremity contracture [Unknown]
  - Fall [Recovered/Resolved]
  - Concussion [Unknown]
  - Gait disturbance [Not Recovered/Not Resolved]
  - Tendon rupture [Recovered/Resolved]
  - Insomnia [Recovered/Resolved]
  - Influenza like illness [Recovered/Resolved]
  - Hypersensitivity [Unknown]
  - Muscle spasticity [Unknown]
